FAERS Safety Report 10471308 (Version 1)
Quarter: 2014Q3

REPORT INFORMATION
  Report Type: Spontaneous
  Country: US (occurrence: US)
  Receive Date: 20140923
  Receipt Date: 20140923
  Transmission Date: 20150326
  Serious: Yes (Hospitalization, Other)
  Sender: FDA-Public Use
  Company Number: US-B.I. PHARMACEUTICALS,INC./RIDGEFIELD-2014-BI-44535BP

PATIENT
  Age: 75 Year
  Sex: Male
  Weight: 67.59 kg

DRUGS (5)
  1. PRADAXA [Suspect]
     Active Substance: DABIGATRAN ETEXILATE MESYLATE
     Indication: CEREBROVASCULAR ACCIDENT PROPHYLAXIS
     Route: 065
     Dates: start: 201204, end: 20120731
  2. O2 [Concomitant]
     Indication: CHRONIC OBSTRUCTIVE PULMONARY DISEASE
     Route: 065
  3. ASPIRIN. [Suspect]
     Active Substance: ASPIRIN
     Indication: ATRIAL FIBRILLATION
     Dosage: 325 MG
     Route: 065
     Dates: start: 201207
  4. ASPIRIN. [Suspect]
     Active Substance: ASPIRIN
     Dosage: 81 MG
     Route: 065
     Dates: start: 201207, end: 20120731
  5. PRADAXA [Suspect]
     Active Substance: DABIGATRAN ETEXILATE MESYLATE
     Indication: ATRIAL FIBRILLATION

REACTIONS (11)
  - Mallory-Weiss syndrome [Unknown]
  - Hypotension [Unknown]
  - Hiatus hernia [Unknown]
  - Haemorrhoids [Unknown]
  - Diverticulum [Unknown]
  - Ecchymosis [Not Recovered/Not Resolved]
  - Oesophagitis [Unknown]
  - Thrombocytopenia [Unknown]
  - Small intestinal haemorrhage [Recovered/Resolved]
  - Leukocytosis [Unknown]
  - Back pain [Unknown]

NARRATIVE: CASE EVENT DATE: 201208
